FAERS Safety Report 25073989 (Version 2)
Quarter: 2025Q1

REPORT INFORMATION
  Report Type: Report from Study
  Country: US (occurrence: US)
  Receive Date: 20250313
  Receipt Date: 20250314
  Transmission Date: 20250409
  Serious: Yes (Death)
  Sender: PFIZER
  Company Number: US-PFIZER INC-202500041560

PATIENT
  Age: 27 Year
  Sex: Male
  Weight: 57.596 kg

DRUGS (1)
  1. TUKYSA [Suspect]
     Active Substance: TUCATINIB
     Indication: Rectal cancer
     Dosage: 150MG, 2 TABLETS EVERY 12 HOURS
     Route: 048
     Dates: start: 20241203

REACTIONS (1)
  - Death [Fatal]

NARRATIVE: CASE EVENT DATE: 20250226
